FAERS Safety Report 5038457-8 (Version None)
Quarter: 2006Q2

REPORT INFORMATION
  Report Type: 
  Country: None (occurrence: None)
  Receive Date: 20060628
  Receipt Date: 20060628
  Transmission Date: 20061013
  Serious: Yes (Hospitalization)
  Sender: FDA-Public Use
  Company Number: None

PATIENT
  Sex: Female
  Weight: 48 kg

DRUGS (2)
  1. MINOCYCLINE HCL [Suspect]
     Indication: ACNE
     Dosage: PO
     Route: 048
     Dates: start: 20051221, end: 20060104
  2. DIFFERIN [Suspect]
     Indication: ACNE
     Dosage: TOP
     Route: 061
     Dates: start: 20051221, end: 20060104

REACTIONS (9)
  - BENIGN INTRACRANIAL HYPERTENSION [None]
  - CRANIAL NERVE PARALYSIS [None]
  - HEADACHE [None]
  - HYPOAESTHESIA [None]
  - NAUSEA [None]
  - PAPILLOEDEMA [None]
  - PARAESTHESIA [None]
  - VISION BLURRED [None]
  - VOMITING [None]
